FAERS Safety Report 19783965 (Version 1)
Quarter: 2021Q3

REPORT INFORMATION
  Report Type: Spontaneous
  Country: US (occurrence: US)
  Receive Date: 20210831
  Receipt Date: 20210831
  Transmission Date: 20211014
  Serious: Yes (Other)
  Sender: FDA-Public Use
  Company Number: None

PATIENT
  Age: 66 Year
  Sex: Female
  Weight: 61.23 kg

DRUGS (6)
  1. BUSPIRONE [Concomitant]
     Active Substance: BUSPIRONE HYDROCHLORIDE
  2. VITAMIN E [Concomitant]
     Active Substance: .ALPHA.-TOCOPHEROL
  3. ASPIRIN 81 MG [Concomitant]
     Active Substance: ASPIRIN
  4. INFLECTRA [Suspect]
     Active Substance: INFLIXIMAB-DYYB
     Indication: ANKYLOSING SPONDYLITIS
     Dates: start: 20210702
  5. VITAMIN C [Concomitant]
     Active Substance: ASCORBIC ACID
  6. CITRUCEL [Concomitant]
     Active Substance: METHYLCELLULOSE (4000 MPA.S)

REACTIONS (14)
  - Illness [None]
  - Infusion related reaction [None]
  - Hyperhidrosis [None]
  - Chills [None]
  - Hypersensitivity [None]
  - Lip swelling [None]
  - Abdominal pain [None]
  - Hallucination [None]
  - Swelling face [None]
  - Urticaria [None]
  - Loss of consciousness [None]
  - Tremor [None]
  - Blood pressure decreased [None]
  - Erythema [None]

NARRATIVE: CASE EVENT DATE: 20210716
